FAERS Safety Report 11612163 (Version 1)
Quarter: 2015Q4

REPORT INFORMATION
  Report Type: Spontaneous
  Country: US (occurrence: US)
  Receive Date: 20151008
  Receipt Date: 20151008
  Transmission Date: 20160304
  Serious: No
  Sender: FDA-Public Use
  Company Number: US-GLAXOSMITHKLINE-A1023897A

PATIENT
  Sex: Female

DRUGS (1)
  1. ADVAIR DISKUS [Suspect]
     Active Substance: FLUTICASONE PROPIONATE\SALMETEROL XINAFOATE
     Indication: ASTHMA
     Dosage: (DOSE WAS GRADUALLY INCREASED)
     Route: 065
     Dates: start: 20101222

REACTIONS (3)
  - Sleep apnoea syndrome [Unknown]
  - Injury [Unknown]
  - Lung disorder [Unknown]
